FAERS Safety Report 8828875 (Version 2)
Quarter: 2012Q4

REPORT INFORMATION
  Report Type: Report from Study
  Country: DE (occurrence: DE)
  Receive Date: 20121008
  Receipt Date: 20121011
  Transmission Date: 20130627
  Serious: Yes (Hospitalization)
  Sender: FDA-Public Use
  Company Number: DE-ROCHE-1142243

PATIENT
  Age: 73 Year
  Sex: Female
  Weight: 77 kg

DRUGS (3)
  1. AVASTIN [Suspect]
     Indication: OVARIAN CANCER
     Dosage: Date of last dose prior to SAE: 01/Oct/2012
     Route: 042
     Dates: start: 20120910
  2. CARBOPLATIN [Suspect]
     Indication: OVARIAN CANCER
     Dosage: Date of last dose prior to SAE: 01/Oct/2012
     Route: 042
     Dates: start: 20120910
  3. PACLITAXEL [Suspect]
     Indication: OVARIAN CANCER
     Dosage: Date of last dose prior to SAE: 01/Oct/2012
     Route: 042
     Dates: start: 20120910

REACTIONS (1)
  - Hypertension [Not Recovered/Not Resolved]
